FAERS Safety Report 9513717 (Version 3)
Quarter: 2014Q4

REPORT INFORMATION
  Report Type: Spontaneous
  Country: US (occurrence: US)
  Receive Date: 20130910
  Receipt Date: 20141031
  Transmission Date: 20150529
  Serious: Yes (Hospitalization, Other)
  Sender: FDA-Public Use
  Company Number: US-BAYER-2013-109147

PATIENT
  Age: 27 Year
  Sex: Female
  Weight: 54.42 kg

DRUGS (3)
  1. MIRENA [Suspect]
     Active Substance: LEVONORGESTREL
     Indication: CONTRACEPTION
     Dosage: 20 MCG/24HR, CONT
     Route: 015
     Dates: start: 20100304, end: 20121017
  2. LORTAB [Concomitant]
     Active Substance: ACETAMINOPHEN\HYDROCODONE BITARTRATE
     Indication: ADNEXA UTERI PAIN
     Dosage: UNK
     Dates: start: 201004, end: 20121017
  3. TRAMADOL [Concomitant]
     Active Substance: TRAMADOL
     Indication: ADNEXA UTERI PAIN
     Dosage: UNK
     Dates: start: 201004, end: 20121017

REACTIONS (14)
  - Abdominal pain [None]
  - Uterine perforation [None]
  - Emotional distress [None]
  - Depressed mood [None]
  - Device difficult to use [None]
  - Genital haemorrhage [None]
  - Back pain [None]
  - Uterine enlargement [None]
  - Procedural pain [None]
  - Device issue [None]
  - Dysmenorrhoea [None]
  - Fear [None]
  - Injury [None]
  - Headache [None]

NARRATIVE: CASE EVENT DATE: 201003
